FAERS Safety Report 8193292-7 (Version None)
Quarter: 2012Q1

REPORT INFORMATION
  Report Type: 
  Country: None (occurrence: None)
  Receive Date: 20120308
  Receipt Date: 20120223
  Transmission Date: 20120608
  Serious: Yes (Death)
  Sender: FDA-Public Use
  Company Number: US-MYLANLABS-2012S1004243

PATIENT
  Age: 41 Year
  Sex: Male

DRUGS (7)
  1. TRUVADA [Concomitant]
     Indication: HIV INFECTION
     Route: 065
  2. DIDANOSINE [Concomitant]
     Indication: HIV INFECTION
     Route: 065
  3. DOXORUBICIN HCL [Suspect]
     Indication: BURKITT'S LYMPHOMA
     Route: 065
  4. ETOPOSIDE [Suspect]
     Indication: BURKITT'S LYMPHOMA
     Route: 065
  5. COTRIM [Concomitant]
     Indication: PNEUMOCYSTIS JIROVECI PNEUMONIA
     Route: 065
  6. LAMIVUDINE [Concomitant]
     Indication: HIV INFECTION
     Route: 065
  7. KALETRA                            /01506501/ [Concomitant]
     Indication: HIV INFECTION
     Route: 065

REACTIONS (8)
  - DIARRHOEA [None]
  - RENAL FAILURE [None]
  - ACUTE HEPATIC FAILURE [None]
  - ADENOVIRUS INFECTION [None]
  - COAGULOPATHY [None]
  - HEPATITIS [None]
  - HYPOTENSION [None]
  - HAEMORRHAGE [None]
